FAERS Safety Report 7782919-7 (Version None)
Quarter: 2011Q3

REPORT INFORMATION
  Report Type: 
  Country: None (occurrence: None)
  Receive Date: 20110927
  Receipt Date: 20110927
  Transmission Date: 20111222
  Serious: Yes (Hospitalization)
  Sender: FDA-Public Use
  Company Number: None

PATIENT
  Sex: Female
  Weight: 53.6 kg

DRUGS (2)
  1. BEVACIZUMAB (RHUMAB VEGF) [Suspect]
     Dosage: 413 MG
  2. ELOXATIN [Suspect]
     Dosage: 204 MG

REACTIONS (7)
  - NAUSEA [None]
  - ABDOMINAL PAIN [None]
  - FATIGUE [None]
  - DIARRHOEA [None]
  - DEHYDRATION [None]
  - VOMITING [None]
  - PERIPHERAL MOTOR NEUROPATHY [None]
